FAERS Safety Report 11247024 (Version 1)
Quarter: 2015Q3

REPORT INFORMATION
  Report Type: Spontaneous
  Country: US (occurrence: None)
  Receive Date: 20150706
  Receipt Date: 20150706
  Transmission Date: 20151125
  Serious: Yes (Other)
  Sender: FDA-Public Use
  Company Number: None

PATIENT
  Age: 84 Year
  Sex: Female
  Weight: 77.11 kg

DRUGS (6)
  1. KIRKLAND GLUCOSAMINE WITH MSM [Concomitant]
  2. GLEEVEC [Suspect]
     Active Substance: IMATINIB MESYLATE
     Indication: GASTROINTESTINAL STROMAL TUMOUR
     Route: 048
     Dates: start: 20150429, end: 20150603
  3. KIRKLAND DAILY MULTI [Concomitant]
  4. ALLERPLEX [Concomitant]
  5. B COMPLEX, C, D [Concomitant]
  6. LISNIOPRIL [Concomitant]

REACTIONS (6)
  - Swelling face [None]
  - Ulcer [None]
  - Joint swelling [None]
  - Rash [None]
  - Dysgeusia [None]
  - Insomnia [None]

NARRATIVE: CASE EVENT DATE: 20150606
